FAERS Safety Report 15228465 (Version 4)
Quarter: 2020Q1

REPORT INFORMATION
  Report Type: Report from Study
  Country: US (occurrence: US)
  Receive Date: 20180801
  Receipt Date: 20200124
  Transmission Date: 20200409
  Serious: No
  Sender: FDA-Public Use
  Company Number: PHEH2018US031181

PATIENT
  Sex: Female

DRUGS (1)
  1. ENTRESTO [Suspect]
     Active Substance: SACUBITRIL\VALSARTAN
     Indication: CARDIAC FAILURE
     Dosage: 50 MG (24MG SACUBITRIL/ 26MG VALSARTAN)
     Route: 048

REACTIONS (4)
  - Influenza [Unknown]
  - Food poisoning [Unknown]
  - Malaise [Unknown]
  - Ligament rupture [Unknown]
